FAERS Safety Report 9330928 (Version 1)
Quarter: 2013Q2

REPORT INFORMATION
  Report Type: Spontaneous
  Country: CA (occurrence: CA)
  Receive Date: 20130605
  Receipt Date: 20130605
  Transmission Date: 20140414
  Serious: Yes (Death, Other)
  Sender: FDA-Public Use
  Company Number: CA-PFIZER INC-2013166845

PATIENT
  Age: 55 Year
  Sex: Male

DRUGS (12)
  1. CELEBREX [Suspect]
     Dosage: 100 MG, 2X/DAY
  2. CELEBREX [Suspect]
     Dosage: 100 MG, 2X/DAY
     Dates: start: 20001113
  3. SOFRA-TULLE [Concomitant]
     Dosage: UNK, EVERY 8 HOURS TO HIS LEFT FOOT
  4. DAKIN^S SOLUTION [Concomitant]
     Indication: WOUND
     Dosage: UNK, ONCE DAILY
  5. TAZOCIN [Concomitant]
     Indication: INFECTION
     Dosage: 2.25 G, 3X/DAY (EVERY 8 HOURS)
     Route: 042
  6. DOMPERIDONE [Concomitant]
     Dosage: 5 MG, 3X/DAY
  7. IMODIUM [Concomitant]
     Dosage: 2 MG, 2X/DAY
  8. LOSEC [Concomitant]
     Dosage: 20 MG, 2X/DAY
  9. DIA-VITE [Concomitant]
     Dosage: 1 DF, 1X/DAY
  10. PAXIL [Concomitant]
     Dosage: 20 MG, 1X/DAY
  11. CALCIUM CARBONATE [Concomitant]
     Dosage: 500 UNKNOWN UNITS THREE TIMES DAILY
  12. ASA [Concomitant]
     Dosage: 325 UNKNOWN UNITS ONCE DAILY

REACTIONS (2)
  - Cardio-respiratory arrest [Fatal]
  - Myocardial infarction [Fatal]
